FAERS Safety Report 7248931-1 (Version None)
Quarter: 2011Q1

REPORT INFORMATION
  Report Type: 
  Country: None (occurrence: None)
  Receive Date: 20110128
  Receipt Date: 20110117
  Transmission Date: 20110831
  Serious: Yes (Other)
  Sender: FDA-Public Use
  Company Number: US-SOLVAY-00211000468

PATIENT
  Age: 841 Month
  Sex: Male
  Weight: 90.909 kg

DRUGS (3)
  1. UNKNOWN BLOOD PRESSURE MEDICATION [Concomitant]
     Indication: PRODUCT USED FOR UNKNOWN INDICATION
     Dosage: DAILY DOSE:  UNKNOWN
     Route: 065
  2. ANDROGEL [Suspect]
     Indication: BLOOD TESTOSTERONE DECREASED
     Dosage: DAILY DOSE: 5 GRAM(S)
     Route: 062
     Dates: end: 20101201
  3. LIPITOR [Suspect]
     Indication: BLOOD CHOLESTEROL
     Dosage: DAILY DOSE:  UNKNOWN
     Route: 065
     Dates: end: 20101201

REACTIONS (1)
  - NERVE COMPRESSION [None]
